FAERS Safety Report 19478275 (Version 1)
Quarter: 2021Q2

REPORT INFORMATION
  Report Type: Spontaneous
  Country: US (occurrence: US)
  Receive Date: 20210630
  Receipt Date: 20210630
  Transmission Date: 20210717
  Serious: No
  Sender: FDA-Public Use
  Company Number: US-SA-2021SA213027

PATIENT
  Age: 5 Year
  Sex: Male

DRUGS (1)
  1. DUPIXENT [Suspect]
     Active Substance: DUPILUMAB
     Indication: DERMATITIS ATOPIC
     Dosage: UNK, TOTAL
     Dates: start: 20210518, end: 20210518

REACTIONS (2)
  - Mydriasis [Unknown]
  - Off label use [Unknown]

NARRATIVE: CASE EVENT DATE: 20210518
